FAERS Safety Report 13034596 (Version 1)
Quarter: 2016Q4

REPORT INFORMATION
  Report Type: Spontaneous
  Country: US (occurrence: US)
  Receive Date: 20161216
  Receipt Date: 20161216
  Transmission Date: 20170207
  Serious: Yes (Other)
  Sender: FDA-Public Use
  Company Number: PHHY2016US172953

PATIENT
  Sex: Female

DRUGS (1)
  1. COMBIPATCH [Suspect]
     Active Substance: ESTRADIOL\NORETHINDRONE ACETATE
     Indication: PRODUCT USED FOR UNKNOWN INDICATION
     Dosage: 50/140 MG, UNKNOWN
     Route: 062
     Dates: start: 2013, end: 201611

REACTIONS (2)
  - Drug dose omission [Not Recovered/Not Resolved]
  - Cholecystitis infective [Not Recovered/Not Resolved]

NARRATIVE: CASE EVENT DATE: 201611
